FAERS Safety Report 8582722-4 (Version None)
Quarter: 2012Q3

REPORT INFORMATION
  Report Type: 
  Country: None (occurrence: None)
  Receive Date: 20120809
  Receipt Date: 20120730
  Transmission Date: 20120928
  Serious: Yes (Other)
  Sender: FDA-Public Use
  Company Number: US-JNJFOC-20120715394

PATIENT
  Sex: Female

DRUGS (20)
  1. CYMBALTA [Concomitant]
     Route: 065
  2. ZOFRAN [Concomitant]
     Route: 065
  3. NEXIUM [Concomitant]
     Route: 065
  4. VITAMIN B-12 [Concomitant]
     Route: 065
  5. LYRICA [Concomitant]
     Route: 065
  6. SEROQUEL XR [Concomitant]
     Route: 065
  7. VITAMINS C [Concomitant]
     Route: 065
  8. VITAMIN D [Concomitant]
     Route: 065
  9. ATENOLOL [Concomitant]
     Route: 065
  10. MILK OF MAGNESIA TAB [Concomitant]
     Route: 065
  11. SUDAFED 12 HOUR [Suspect]
     Indication: PRODUCT USED FOR UNKNOWN INDICATION
     Route: 065
  12. PENTASA [Concomitant]
     Route: 065
  13. TRILIPIX [Concomitant]
     Route: 065
  14. LEVOTHYROXINE SODIUM [Concomitant]
     Route: 065
  15. XANAX [Concomitant]
     Route: 065
  16. STOOL SOFTENER [Concomitant]
     Route: 065
  17. BIOTIN [Concomitant]
     Route: 065
  18. SIMVASTATIN [Concomitant]
     Route: 065
  19. PROMETHAZINE [Concomitant]
     Route: 065
  20. VITAMINS NOS [Concomitant]
     Route: 065

REACTIONS (1)
  - HALLUCINATION [None]
